FAERS Safety Report 10909875 (Version 1)
Quarter: 2015Q1

REPORT INFORMATION
  Report Type: Spontaneous
  Country: US (occurrence: US)
  Receive Date: 20150312
  Receipt Date: 20150312
  Transmission Date: 20150721
  Serious: Yes (Other)
  Sender: FDA-Public Use
  Company Number: US-JNJFOC-20150308717

PATIENT
  Age: 53 Year
  Sex: Male

DRUGS (2)
  1. IMBRUVICA [Suspect]
     Active Substance: IBRUTINIB
     Indication: CHRONIC LYMPHOCYTIC LEUKAEMIA
     Route: 048
     Dates: start: 20140412, end: 20140808
  2. ALLOPURINOL. [Concomitant]
     Active Substance: ALLOPURINOL
     Route: 048

REACTIONS (4)
  - Angle closure glaucoma [Unknown]
  - Blindness unilateral [Unknown]
  - Iris adhesions [Unknown]
  - Retinal detachment [Unknown]

NARRATIVE: CASE EVENT DATE: 201407
